FAERS Safety Report 7412219-6 (Version None)
Quarter: 2011Q2

REPORT INFORMATION
  Report Type: 
  Country: None (occurrence: None)
  Receive Date: 20110413
  Receipt Date: 20110331
  Transmission Date: 20111010
  Serious: Yes (Life-Threatening, Hospitalization, Other)
  Sender: FDA-Public Use
  Company Number: JP-ELI_LILLY_AND_COMPANY-JP201103001257

PATIENT
  Age: 47 Year
  Sex: Male

DRUGS (10)
  1. LIMAS [Concomitant]
     Indication: BIPOLAR DISORDER
     Dosage: 200 MG, TID
     Route: 048
     Dates: start: 20081226, end: 20110302
  2. BEZATOL [Concomitant]
     Indication: BIPOLAR DISORDER
     Dosage: 200 MG, QD
     Route: 048
     Dates: start: 20101208, end: 20110302
  3. ZYPREXA [Suspect]
     Indication: BIPOLAR DISORDER
     Dosage: 10 MG, DAILY (1/D)
     Route: 048
     Dates: start: 20101124, end: 20110302
  4. WYPAX [Concomitant]
     Indication: BIPOLAR DISORDER
     Dosage: 0.5 G, BID
     Route: 048
     Dates: start: 20101115, end: 20110302
  5. LENDORMIN [Concomitant]
     Indication: BIPOLAR DISORDER
     Dosage: 0.25 G, BID
     Route: 048
     Dates: start: 20090402, end: 20110302
  6. MYSLEE [Concomitant]
     Indication: INSOMNIA
     Dosage: 10 MG, QD
     Route: 048
     Dates: start: 20090202, end: 20110302
  7. RIBOFLAVIN TAB [Concomitant]
     Dosage: 20 MG, TID
     Route: 048
  8. MEVALOTIN [Concomitant]
     Indication: BIPOLAR DISORDER
     Dosage: 5 MG, QD
     Route: 048
     Dates: end: 20101208
  9. DORAL [Concomitant]
     Indication: BIPOLAR DISORDER
     Dosage: 15 MG, QD
     Route: 048
     Dates: start: 20090202, end: 20110302
  10. SILECE [Concomitant]
     Indication: BIPOLAR DISORDER
     Dosage: 2 G, QD
     Route: 048
     Dates: start: 20080708, end: 20110302

REACTIONS (15)
  - HYPERKALAEMIA [None]
  - HEPATIC STEATOSIS [None]
  - INCREASED APPETITE [None]
  - WEIGHT INCREASED [None]
  - DIABETIC KETOACIDOSIS [None]
  - RENAL DISORDER [None]
  - PNEUMONIA [None]
  - DEHYDRATION [None]
  - PANCREATITIS [None]
  - PLEURAL EFFUSION [None]
  - ILEUS PARALYTIC [None]
  - RESTLESSNESS [None]
  - POLYDIPSIA [None]
  - DISSEMINATED INTRAVASCULAR COAGULATION [None]
  - HYPERLIPIDAEMIA [None]
